FAERS Safety Report 4359862-9 (Version None)
Quarter: 2004Q2

REPORT INFORMATION
  Report Type: 
  Country: None (occurrence: None)
  Receive Date: 20040517
  Receipt Date: 20040517
  Transmission Date: 20050107
  Serious: Yes (Disabling)
  Sender: FDA-Public Use
  Company Number: None

PATIENT
  Age: 43 Year
  Sex: Female
  Weight: 58.0604 kg

DRUGS (1)
  1. PAXIL [Suspect]
     Indication: DEPRESSION
     Dosage: DAILY
     Dates: start: 20031101, end: 20040514

REACTIONS (7)
  - ANGER [None]
  - DRUG WITHDRAWAL SYNDROME [None]
  - FEELING ABNORMAL [None]
  - HOMICIDAL IDEATION [None]
  - NERVOUSNESS [None]
  - PAIN [None]
  - SUICIDAL IDEATION [None]
